FAERS Safety Report 9944219 (Version 1)
Quarter: 2014Q1

REPORT INFORMATION
  Report Type: Report from Study
  Country: US (occurrence: US)
  Receive Date: 20140303
  Receipt Date: 20140303
  Transmission Date: 20141002
  Serious: No
  Sender: FDA-Public Use
  Company Number: US-ABBVIE-13P-163-1054331-00

PATIENT
  Age: 65 Year
  Sex: Female

DRUGS (4)
  1. HUMIRA [Suspect]
     Indication: CROHN^S DISEASE
     Dates: start: 20121204
  2. PREDNISONE [Concomitant]
     Indication: CROHN^S DISEASE
     Dosage: 10MG DAILY
     Route: 048
  3. LEVSIN [Concomitant]
     Indication: CROHN^S DISEASE
     Route: 048
  4. LOMOTIL [Concomitant]
     Indication: CROHN^S DISEASE
     Route: 048

REACTIONS (1)
  - Hypersensitivity [Not Recovered/Not Resolved]
